FAERS Safety Report 23603809 (Version 1)
Quarter: 2024Q1

REPORT INFORMATION
  Report Type: Spontaneous
  Country: CN (occurrence: CN)
  Receive Date: 20240307
  Receipt Date: 20240307
  Transmission Date: 20240410
  Serious: Yes (Hospitalization)
  Sender: FDA-Public Use
  Company Number: CN-SHANGHAI JUNSHI BIOSCIENCES CO., LTD.-CN2024009404

PATIENT

DRUGS (1)
  1. TORIPALIMAB [Suspect]
     Active Substance: TORIPALIMAB
     Indication: Malignant melanoma stage III
     Dosage: 240 MG, Q2W
     Route: 041
     Dates: start: 20231129, end: 20231228

REACTIONS (4)
  - Dry mouth [Recovering/Resolving]
  - Cardiotoxicity [Recovering/Resolving]
  - Immune-mediated adverse reaction [Recovering/Resolving]
  - Off label use [Unknown]

NARRATIVE: CASE EVENT DATE: 20231129
